FAERS Safety Report 4425710-1 (Version None)
Quarter: 2004Q3

REPORT INFORMATION
  Report Type: 
  Country: None (occurrence: None)
  Receive Date: 20040810
  Receipt Date: 20040726
  Transmission Date: 20050211
  Serious: Yes (Other)
  Sender: FDA-Public Use
  Company Number: 238345

PATIENT
  Sex: Female

DRUGS (4)
  1. VAGIFEM [Suspect]
     Indication: HORMONE REPLACEMENT THERAPY
     Dosage: VAGINAL
     Route: 067
  2. PREMPRO [Concomitant]
  3. PREMARIN [Concomitant]
  4. MEDROXYPROGESTERONE ACETATE [Concomitant]

REACTIONS (1)
  - BREAST CANCER [None]
